FAERS Safety Report 25124919 (Version 1)
Quarter: 2025Q1

REPORT INFORMATION
  Report Type: Spontaneous
  Country: HR (occurrence: HR)
  Receive Date: 20250326
  Receipt Date: 20250326
  Transmission Date: 20250409
  Serious: Yes (Other)
  Sender: AMGEN
  Company Number: HR-AMGEN-HRVSP2025055679

PATIENT
  Sex: Female

DRUGS (1)
  1. BEVACIZUMAB [Suspect]
     Active Substance: BEVACIZUMAB
     Indication: Ovarian cancer
     Route: 065

REACTIONS (2)
  - Chronic kidney disease [Unknown]
  - Nephropathy toxic [Unknown]
